FAERS Safety Report 9150918 (Version 1)
Quarter: 2013Q1

REPORT INFORMATION
  Report Type: Spontaneous
  Country: US (occurrence: None)
  Receive Date: 20130214
  Receipt Date: 20130214
  Transmission Date: 20140127
  Serious: Yes (Other)
  Sender: FDA-Public Use
  Company Number: USA/USA/13/0027922

PATIENT
  Age: 2 Month
  Sex: Male
  Weight: 4.7 kg

DRUGS (5)
  1. TACROLIMUS [Suspect]
     Indication: IMMUNOSUPPRESSANT DRUG THERAPY
  2. METHYLPREDNISOLONE [Suspect]
     Indication: PRODUCT USED FOR UNKNOWN INDICATION
     Route: 042
  3. PREDNISONE (PREDNISONE) [Suspect]
     Indication: PRODUCT USED FOR UNKNOWN INDICATION
  4. GANCICLOVIR (GANCICLOVIR) [Concomitant]
  5. VALGANCICLOVIR (VALGANCICLOVIR) [Concomitant]

REACTIONS (3)
  - Castleman^s disease [None]
  - Hyperuricaemia [None]
  - Liver transplant rejection [None]
